FAERS Safety Report 17416878 (Version 1)
Quarter: 2020Q1

REPORT INFORMATION
  Report Type: Spontaneous
  Country: US (occurrence: US)
  Receive Date: 20200213
  Receipt Date: 20200213
  Transmission Date: 20200409
  Serious: Yes (Life-Threatening, Hospitalization)
  Sender: FDA-Public Use
  Company Number: None

PATIENT
  Age: 61 Year
  Sex: Female
  Weight: 104 kg

DRUGS (1)
  1. WARFARIN [Suspect]
     Active Substance: WARFARIN
     Indication: PULMONARY EMBOLISM

REACTIONS (5)
  - Gingival bleeding [None]
  - Haematuria [None]
  - International normalised ratio increased [None]
  - Drug monitoring procedure not performed [None]
  - Contusion [None]

NARRATIVE: CASE EVENT DATE: 20200211
